FAERS Safety Report 4360697-1 (Version None)
Quarter: 2004Q2

REPORT INFORMATION
  Report Type: 
  Country: None (occurrence: None)
  Receive Date: 20040519
  Receipt Date: 20040519
  Transmission Date: 20050107
  Serious: Yes (Other)
  Sender: FDA-Public Use
  Company Number: None

PATIENT
  Age: 55 Year
  Sex: Female
  Weight: 57 kg

DRUGS (1)
  1. ISOVUE-300 [Suspect]
     Indication: DIAGNOSTIC PROCEDURE
     Dosage: 130 ML IV X 1
     Route: 042
     Dates: start: 20031024

REACTIONS (2)
  - LACRIMATION INCREASED [None]
  - SNEEZING [None]
